FAERS Safety Report 5234645-6 (Version None)
Quarter: 2007Q1

REPORT INFORMATION
  Report Type: 
  Country: None (occurrence: None)
  Receive Date: 20070209
  Receipt Date: 20070129
  Transmission Date: 20070707
  Serious: Yes (Death)
  Sender: FDA-Public Use
  Company Number: FR-ELI_LILLY_AND_COMPANY-FR200701006286

PATIENT
  Age: 50 Year
  Sex: Male

DRUGS (3)
  1. XIGRIS [Suspect]
     Indication: SEPSIS
     Dosage: UNK, OTHER
     Route: 042
     Dates: start: 20070125, end: 20070126
  2. CURARE ALKALOIDS [Concomitant]
  3. OTHER HYPNOTICS AND SEDATIVES [Concomitant]

REACTIONS (1)
  - HAEMORRHAGE INTRACRANIAL [None]
